FAERS Safety Report 20142064 (Version 1)
Quarter: 2021Q4

REPORT INFORMATION
  Report Type: Spontaneous
  Country: US (occurrence: None)
  Receive Date: 20211202
  Receipt Date: 20211202
  Transmission Date: 20220304
  Serious: No
  Sender: FDA-Public Use
  Company Number: None

PATIENT
  Age: 58 Year
  Sex: Female
  Weight: 129.6 kg

DRUGS (1)
  1. GASTROGRAFIN [Suspect]
     Active Substance: DIATRIZOATE MEGLUMINE\DIATRIZOATE SODIUM
     Indication: Gastrointestinal disorder
     Dosage: FREQUENCY : ONCE;?
     Route: 048
     Dates: start: 20211130, end: 20211130

REACTIONS (3)
  - Wrong technique in product usage process [None]
  - Incorrect route of product administration [None]
  - Product communication issue [None]

NARRATIVE: CASE EVENT DATE: 20211130
